FAERS Safety Report 6361191-9 (Version None)
Quarter: 2009Q3

REPORT INFORMATION
  Report Type: 
  Country: None (occurrence: None)
  Receive Date: 20090915
  Receipt Date: 20090915
  Transmission Date: 20100115
  Serious: No
  Sender: FDA-Public Use
  Company Number: None

PATIENT
  Age: 38 Year
  Sex: Male
  Weight: 83.9154 kg

DRUGS (1)
  1. ZICAM NASAL GEL ZICAM [Suspect]
     Indication: NASOPHARYNGITIS
     Dosage: ONE SQUIRT IN EACH SIDE OF NOS 3 TIMES A DAY NASAL, 2X'S A YEAR, A WEEK EACH
     Route: 045

REACTIONS (2)
  - ANOSMIA [None]
  - PAROSMIA [None]
